FAERS Safety Report 13254078 (Version 3)
Quarter: 2017Q2

REPORT INFORMATION
  Report Type: Report from Study
  Country: CA (occurrence: CA)
  Receive Date: 20170221
  Receipt Date: 20170403
  Transmission Date: 20170830
  Serious: Yes (Hospitalization, Other)
  Sender: FDA-Public Use
  Company Number: CA-ROCHE-1886924

PATIENT
  Age: 68 Year
  Sex: Male

DRUGS (17)
  1. ESBRIET [Suspect]
     Active Substance: PIRFENIDONE
     Indication: IDIOPATHIC PULMONARY FIBROSIS
     Route: 048
     Dates: start: 20161202, end: 2017
  2. ESBRIET [Suspect]
     Active Substance: PIRFENIDONE
     Route: 048
     Dates: start: 201612
  3. METFORMIN [Concomitant]
     Active Substance: METFORMIN HYDROCHLORIDE
  4. WARFARIN [Concomitant]
     Active Substance: WARFARIN
  5. BISOPROLOL [Concomitant]
     Active Substance: BISOPROLOL
  6. HYDRALAZINE [Concomitant]
     Active Substance: HYDRALAZINE HYDROCHLORIDE
  7. ESBRIET [Suspect]
     Active Substance: PIRFENIDONE
     Route: 048
     Dates: start: 20161216
  8. SLOW-K [Concomitant]
     Active Substance: POTASSIUM CHLORIDE
  9. GLICLAZIDE [Concomitant]
     Active Substance: GLICLAZIDE
  10. ALLOPURINOL. [Concomitant]
     Active Substance: ALLOPURINOL
  11. FERAMAX [Concomitant]
     Active Substance: IRON\POLYSACCHARIDES
  12. ASA [Concomitant]
     Active Substance: ASPIRIN
  13. VALSARTAN. [Concomitant]
     Active Substance: VALSARTAN
  14. ATORVASTATIN [Concomitant]
     Active Substance: ATORVASTATIN
  15. NITRO PATCH [Concomitant]
     Active Substance: NITROGLYCERIN
  16. LASIX [Concomitant]
     Active Substance: FUROSEMIDE
  17. JANUVIA [Concomitant]
     Active Substance: SITAGLIPTIN PHOSPHATE

REACTIONS (9)
  - Cardiac failure congestive [Unknown]
  - Infection [Unknown]
  - White blood cell count abnormal [Recovering/Resolving]
  - Renal failure [Not Recovered/Not Resolved]
  - Oropharyngeal pain [Unknown]
  - Hypotension [Unknown]
  - Gastrooesophageal reflux disease [Unknown]
  - Liver disorder [Unknown]
  - Neutropenia [Recovering/Resolving]

NARRATIVE: CASE EVENT DATE: 201612
